FAERS Safety Report 8793984 (Version 1)
Quarter: 2012Q4

REPORT INFORMATION
  Report Type: 
  Country: US (occurrence: US)
  Receive Date: 20120917
  Receipt Date: 20120917
  Transmission Date: 20130627
  Serious: Yes (Death)
  Sender: FDA-Public Use
  Company Number: PHEH2012US017849

PATIENT
  Age: 78 Year
  Sex: Female
  Weight: 63.49 kg

DRUGS (8)
  1. EXJADE [Suspect]
     Indication: IRON METABOLISM DISORDER
     Dosage: 1000 mg, daily
     Route: 048
     Dates: start: 201206
  2. LISINOPRIL [Concomitant]
     Dosage: UNK UKN, UNK
     Route: 065
  3. PREDNISONE [Concomitant]
     Dosage: UNK UKN, UNK
     Route: 065
  4. METFORMIN [Concomitant]
     Dosage: UNK UKN, UNK
     Route: 065
  5. ZOCOR [Concomitant]
     Dosage: UNK UKN, UNK
     Route: 065
  6. TEMAZEPAM [Concomitant]
     Dosage: UNK UKN, UNK
     Route: 065
  7. NEUPOGEN [Concomitant]
     Dosage: UNK UKN, UNK
     Route: 065
  8. REVLIMID [Concomitant]
     Dosage: UNK UKN, UNK
     Route: 065

REACTIONS (1)
  - Death [Fatal]
